FAERS Safety Report 7352482-3 (Version None)
Quarter: 2011Q1

REPORT INFORMATION
  Report Type: 
  Country: None (occurrence: None)
  Receive Date: 20110315
  Receipt Date: 20110311
  Transmission Date: 20110831
  Serious: Yes (Death, Hospitalization)
  Sender: FDA-Public Use
  Company Number: US-ASTRAZENECA-2011SE13726

PATIENT
  Age: 77 Year
  Sex: Female

DRUGS (4)
  1. ALBUTEROL [Concomitant]
  2. IPRATROPIUM BROMIDE [Concomitant]
  3. TOPROL-XL [Suspect]
     Route: 048
  4. LOPRESSOR [Concomitant]

REACTIONS (3)
  - CARDIAC ARREST [None]
  - EMPHYSEMA [None]
  - MULTI-ORGAN FAILURE [None]
